FAERS Safety Report 8158290-8 (Version None)
Quarter: 2012Q1

REPORT INFORMATION
  Report Type: 
  Country: None (occurrence: None)
  Receive Date: 20120223
  Receipt Date: 20120216
  Transmission Date: 20120608
  Serious: No
  Sender: FDA-Public Use
  Company Number: US-BIOGENIDEC-2012BI006488

PATIENT
  Sex: Female

DRUGS (2)
  1. AVONEX [Suspect]
     Route: 030
  2. AVONEX [Suspect]
     Indication: MULTIPLE SCLEROSIS
     Route: 030
     Dates: start: 20010101

REACTIONS (11)
  - ARTHRALGIA [None]
  - INJECTION SITE SCAR [None]
  - VOMITING [None]
  - INJECTION SITE PAIN [None]
  - TREMOR [None]
  - INJECTION SITE ERYTHEMA [None]
  - PYREXIA [None]
  - PAIN [None]
  - PAIN IN EXTREMITY [None]
  - NAUSEA [None]
  - SCAR [None]
